FAERS Safety Report 17031163 (Version 2)
Quarter: 2019Q4

REPORT INFORMATION
  Report Type: Spontaneous
  Country: HR (occurrence: HR)
  Receive Date: 20191114
  Receipt Date: 20191203
  Transmission Date: 20200122
  Serious: Yes (Other)
  Sender: FDA-Public Use
  Company Number: HR-GLAXOSMITHKLINE-HR2019206203

PATIENT
  Age: 2 Year
  Sex: Male

DRUGS (1)
  1. SALBUTAMOL [Suspect]
     Active Substance: ALBUTEROL
     Indication: PRODUCT USED FOR UNKNOWN INDICATION
     Dosage: 2.5 ML, UNK
     Route: 055
     Dates: start: 20190930, end: 20190930

REACTIONS (2)
  - Tachycardia [Unknown]
  - Accidental overdose [Unknown]

NARRATIVE: CASE EVENT DATE: 20190930
